FAERS Safety Report 9691843 (Version 1)
Quarter: 2013Q4

REPORT INFORMATION
  Report Type: Spontaneous
  Country: FR (occurrence: FR)
  Receive Date: 20131117
  Receipt Date: 20131117
  Transmission Date: 20140711
  Serious: Yes (Life-Threatening, Hospitalization, Other)
  Sender: FDA-Public Use
  Company Number: FR-ASTRAZENECA-2013SE83651

PATIENT
  Age: 1481 Week
  Sex: Female

DRUGS (4)
  1. XEROQUEL [Suspect]
     Indication: DEPRESSION
     Route: 048
  2. XEROQUEL [Suspect]
     Indication: DEPRESSION
     Route: 048
     Dates: start: 20131008, end: 20131008
  3. LEPTICUR [Concomitant]
     Indication: DEPRESSION
     Route: 048
  4. PAROXETINE [Concomitant]
     Indication: DEPRESSION
     Route: 048

REACTIONS (12)
  - Coma [Recovered/Resolved]
  - Toxicity to various agents [Unknown]
  - Suicide attempt [Recovered/Resolved]
  - Lung disorder [Recovering/Resolving]
  - Staphylococcal infection [Unknown]
  - Haemophilus infection [Unknown]
  - Tachycardia [Unknown]
  - Pyrexia [Recovering/Resolving]
  - Anxiety [Unknown]
  - Thymus disorder [Unknown]
  - Agitation [Unknown]
  - Aggression [Unknown]
